FAERS Safety Report 19588210 (Version 1)
Quarter: 2021Q3

REPORT INFORMATION
  Report Type: Spontaneous
  Country: US (occurrence: US)
  Receive Date: 20210720
  Receipt Date: 20210720
  Transmission Date: 20211014
  Serious: Yes (Life-Threatening)
  Sender: FDA-Public Use
  Company Number: None

PATIENT
  Age: 80 Year
  Sex: Female
  Weight: 67 kg

DRUGS (2)
  1. IOHEXOL 80ML [Concomitant]
     Dates: start: 20210718, end: 20210718
  2. ACTIVASE [Suspect]
     Active Substance: ALTEPLASE
     Indication: CEREBROVASCULAR ACCIDENT
     Route: 042
     Dates: start: 20210718, end: 20210718

REACTIONS (3)
  - Lip oedema [None]
  - Angioedema [None]
  - Flushing [None]

NARRATIVE: CASE EVENT DATE: 20210718
